FAERS Safety Report 21559781 (Version 3)
Quarter: 2022Q4

REPORT INFORMATION
  Report Type: Report from Study
  Country: MX (occurrence: MX)
  Receive Date: 20221107
  Receipt Date: 20221207
  Transmission Date: 20230112
  Serious: Yes (Other)
  Sender: FDA-Public Use
  Company Number: MX-002147023-NVSC2022MX248351

PATIENT
  Age: 66 Year
  Sex: Female

DRUGS (1)
  1. TASIGNA [Suspect]
     Active Substance: NILOTINIB
     Indication: Chronic myeloid leukaemia
     Dosage: UNK
     Route: 048

REACTIONS (15)
  - Facial bones fracture [Unknown]
  - Thyroid cancer [Unknown]
  - Second primary malignancy [Unknown]
  - Pleural effusion [Unknown]
  - Oxygen saturation decreased [Unknown]
  - Blindness unilateral [Unknown]
  - Feeling abnormal [Unknown]
  - Fall [Unknown]
  - Throat tightness [Unknown]
  - Anger [Unknown]
  - Depressed mood [Unknown]
  - Fear [Unknown]
  - Heart valve stenosis [Unknown]
  - Anxiety [Unknown]
  - Hypertension [Unknown]

NARRATIVE: CASE EVENT DATE: 20221013
